FAERS Safety Report 5389619-1 (Version None)
Quarter: 2007Q3

REPORT INFORMATION
  Report Type: 
  Country: None (occurrence: None)
  Receive Date: 20070717
  Receipt Date: 20070710
  Transmission Date: 20080115
  Serious: Yes (Other)
  Sender: FDA-Public Use
  Company Number: US-ASTRAZENECA-2007UW16096

PATIENT
  Age: 55 Year
  Sex: Female
  Weight: 59.9 kg

DRUGS (8)
  1. SEROQUEL [Suspect]
     Route: 048
     Dates: start: 20010101
  2. SEROQUEL [Suspect]
     Route: 048
     Dates: start: 20060101
  3. NEURONTIN [Concomitant]
  4. TYLENOL [Concomitant]
  5. ARTANE [Concomitant]
  6. PAXIL [Concomitant]
  7. XANAX [Concomitant]
  8. CHANTIX [Concomitant]
     Dates: end: 20070501

REACTIONS (11)
  - AMNESIA [None]
  - CATARACT OPERATION [None]
  - CHOLECYSTITIS [None]
  - COLLAPSE OF LUNG [None]
  - GASTROOESOPHAGEAL REFLUX DISEASE [None]
  - HYPOGLYCAEMIA [None]
  - IRRITABLE BOWEL SYNDROME [None]
  - PHARYNGITIS STREPTOCOCCAL [None]
  - THINKING ABNORMAL [None]
  - TONSILLECTOMY [None]
  - WEIGHT INCREASED [None]
